FAERS Safety Report 4749766-1 (Version None)
Quarter: 2005Q3

REPORT INFORMATION
  Report Type: 
  Country: None (occurrence: None)
  Receive Date: 20050822
  Receipt Date: 20050815
  Transmission Date: 20060218
  Serious: Yes (Death, Hospitalization, Other)
  Sender: FDA-Public Use
  Company Number: US-BRISTOL-MYERS SQUIBB COMPANY-13078308

PATIENT
  Age: 63 Year
  Sex: Female

DRUGS (6)
  1. CETUXIMAB [Suspect]
     Indication: NON-SMALL CELL LUNG CANCER
     Dosage: 1ST DOSE ADMINISTERED 13-JUN-2005.
     Route: 042
     Dates: start: 20050613, end: 20050613
  2. GEMCITABINE [Suspect]
     Indication: NON-SMALL CELL LUNG CANCER
     Dosage: 1ST DOSE ADMINISTERED 13-JUN-2005.
     Route: 042
     Dates: start: 20050620, end: 20050620
  3. DECADRON [Concomitant]
     Dates: start: 20050701
  4. LORTAB [Concomitant]
     Dates: start: 20050701
  5. LOPRESSOR [Concomitant]
     Dates: start: 20030601
  6. ACIPHEX [Concomitant]
     Dates: start: 20050101

REACTIONS (3)
  - DEEP VEIN THROMBOSIS [None]
  - MALIGNANT NEOPLASM PROGRESSION [None]
  - PLATELET COUNT DECREASED [None]
